FAERS Safety Report 5154165-7 (Version None)
Quarter: 2006Q4

REPORT INFORMATION
  Report Type: 
  Country: None (occurrence: None)
  Receive Date: 20061116
  Receipt Date: 20061116
  Transmission Date: 20070319
  Serious: Yes (Hospitalization, Other)
  Sender: FDA-Public Use
  Company Number: None

PATIENT
  Age: 74 Year
  Sex: Male

DRUGS (21)
  1. ASPIRIN [Suspect]
     Indication: CORONARY ARTERY DISEASE
     Dosage: 81 MG OD OTHER
     Route: 050
     Dates: start: 20050506, end: 20050521
  2. PLAVIX [Suspect]
     Dosage: 75 MG OD OTHER
     Route: 050
     Dates: start: 20050506, end: 20050521
  3. DILTIAZEM HCL [Concomitant]
  4. LISINOPRIL [Concomitant]
  5. ZOCOR [Concomitant]
  6. FOLIC ACID [Concomitant]
  7. LEXAPRO [Concomitant]
  8. DIGOXIN [Concomitant]
  9. PREVACID [Concomitant]
  10. REGULAR INSULIN [Concomitant]
  11. HYDRALAZINE HCL [Concomitant]
  12. HEPARIN LOCK-FLUSH [Concomitant]
  13. MORPHINE [Concomitant]
  14. TRAMADOL HCL [Concomitant]
  15. ALBUTEROL [Concomitant]
  16. METHYLPREDNISOLONE [Concomitant]
  17. IPRATROPIUM BROMIDE [Concomitant]
  18. AEROSOL [Concomitant]
  19. ALPRAZOLAM [Concomitant]
  20. LASIX [Concomitant]
  21. CEFEPIME [Concomitant]

REACTIONS (1)
  - UPPER GASTROINTESTINAL HAEMORRHAGE [None]
